FAERS Safety Report 7637060-0 (Version None)
Quarter: 2011Q3

REPORT INFORMATION
  Report Type: 
  Country: None (occurrence: None)
  Receive Date: 20110726
  Receipt Date: 20110714
  Transmission Date: 20111222
  Serious: Yes (Other)
  Sender: FDA-Public Use
  Company Number: US-ASTRAZENECA-2011SE42284

PATIENT
  Age: 49 Year
  Sex: Male

DRUGS (1)
  1. SYMBICORT [Suspect]
     Route: 055

REACTIONS (4)
  - ANEURYSM [None]
  - DRUG DOSE OMISSION [None]
  - RESPIRATORY DISORDER [None]
  - DEPRESSION [None]
